FAERS Safety Report 13913771 (Version 1)
Quarter: 2017Q3

REPORT INFORMATION
  Report Type: Spontaneous
  Country: US (occurrence: US)
  Receive Date: 20170828
  Receipt Date: 20170828
  Transmission Date: 20171127
  Serious: No
  Sender: FDA-Public Use
  Company Number: US-ROCHE-1140547

PATIENT
  Sex: Female
  Weight: 35.5 kg

DRUGS (1)
  1. NUTROPIN AQ [Suspect]
     Active Substance: SOMATROPIN
     Indication: GROWTH HORMONE DEFICIENCY
     Dosage: 0.18 MG/KG/WK
     Route: 058
     Dates: start: 19991020

REACTIONS (1)
  - Weight increased [Unknown]
